FAERS Safety Report 20203480 (Version 1)
Quarter: 2021Q4

REPORT INFORMATION
  Report Type: Spontaneous
  Country: US (occurrence: US)
  Receive Date: 20211219
  Receipt Date: 20211219
  Transmission Date: 20220303
  Serious: No
  Sender: FDA-Public Use
  Company Number: US-ORGANON-O2112USA000532

PATIENT
  Age: 19 Year
  Sex: Female
  Weight: 48.98 kg

DRUGS (1)
  1. NEXPLANON [Suspect]
     Active Substance: ETONOGESTREL
     Indication: Contraception
     Dosage: 1 IMPLANT
     Route: 059
     Dates: end: 20211202

REACTIONS (3)
  - Heavy menstrual bleeding [Recovering/Resolving]
  - Device issue [Recovered/Resolved]
  - Complication associated with device [Recovered/Resolved]

NARRATIVE: CASE EVENT DATE: 20211202
